FAERS Safety Report 21365486 (Version 2)
Quarter: 2022Q4

REPORT INFORMATION
  Report Type: Spontaneous
  Country: US (occurrence: US)
  Receive Date: 20220922
  Receipt Date: 20221008
  Transmission Date: 20230113
  Serious: Yes (Hospitalization)
  Sender: FDA-Public Use
  Company Number: US-TEVA-2022-US-2074195

PATIENT
  Age: 42 Year
  Sex: Male

DRUGS (1)
  1. PROPOFOL [Suspect]
     Active Substance: PROPOFOL
     Indication: Sedation
     Dosage: 57600 UG/KG DAILY; ROUTE: INFUSION
     Route: 050

REACTIONS (3)
  - Hypertriglyceridaemia [Unknown]
  - Propofol infusion syndrome [Unknown]
  - Device mechanical issue [Unknown]
